FAERS Safety Report 21732464 (Version 1)
Quarter: 2022Q4

REPORT INFORMATION
  Report Type: Spontaneous
  Country: US (occurrence: US)
  Receive Date: 20221215
  Receipt Date: 20221215
  Transmission Date: 20230113
  Serious: Yes (Other)
  Sender: FDA-Public Use
  Company Number: US-SANOFI-00878763

PATIENT
  Age: 60 Year
  Sex: Female

DRUGS (2)
  1. LANTUS SOLOSTAR [Suspect]
     Active Substance: INSULIN GLARGINE
     Indication: Type 2 diabetes mellitus
     Dosage: 40 IU, QD
     Route: 065
  2. LANTUS SOLOSTAR [Suspect]
     Active Substance: INSULIN GLARGINE
     Dosage: 50 IU, QD

REACTIONS (8)
  - Glaucoma [Unknown]
  - Cerebrovascular accident [Unknown]
  - Memory impairment [Unknown]
  - Headache [Unknown]
  - Heart rate increased [Unknown]
  - Visual impairment [Unknown]
  - Blood glucose abnormal [Unknown]
  - Product storage error [Unknown]
